FAERS Safety Report 7655824-4 (Version None)
Quarter: 2011Q3

REPORT INFORMATION
  Report Type: 
  Country: None (occurrence: None)
  Receive Date: 20110804
  Receipt Date: 20110523
  Transmission Date: 20111222
  Serious: Yes (Hospitalization, Other)
  Sender: FDA-Public Use
  Company Number: FR-ASTELLAS-2011EU002500

PATIENT
  Sex: Female

DRUGS (9)
  1. PROGRAF [Suspect]
     Dosage: UNK
     Route: 048
     Dates: end: 20101215
  2. PREDNISONE [Concomitant]
     Dosage: 20 MG, UNKNOWN/D
     Route: 048
     Dates: start: 20100201
  3. TACROLIMUS [Suspect]
     Indication: LIVER TRANSPLANT
     Dosage: 8 MG, UNKNOWN/D
     Route: 048
     Dates: start: 20101215, end: 20110426
  4. CELLCEPT [Concomitant]
     Dosage: 2 G, UNKNOWN/D
     Route: 048
     Dates: start: 20100201, end: 20100501
  5. TACROLIMUS [Suspect]
     Dosage: 7 MG, UNKNOWN/D
     Route: 048
     Dates: start: 20110427
  6. NEXIUM [Concomitant]
     Dosage: 1 DF, UNKNOWN/D
     Route: 065
     Dates: start: 20100601
  7. PROGRAF [Suspect]
     Indication: LIVER TRANSPLANT
     Dosage: 10 MG, UNKNOWN/D
     Route: 048
     Dates: start: 20100101, end: 20110603
  8. MAGNESIUM [Concomitant]
     Dosage: 6 DF, UNKNOWN/D
     Route: 065
     Dates: start: 20100601
  9. CORTICOSTEROID NOS [Concomitant]
     Dosage: UNK
     Route: 065
     Dates: start: 20100201, end: 20100101

REACTIONS (5)
  - TINNITUS [None]
  - TREMOR [None]
  - CONGESTIVE CARDIOMYOPATHY [None]
  - ARTHRALGIA [None]
  - ACUTE PULMONARY OEDEMA [None]
